FAERS Safety Report 15397788 (Version 2)
Quarter: 2018Q4

REPORT INFORMATION
  Report Type: Spontaneous
  Country: US (occurrence: US)
  Receive Date: 20180918
  Receipt Date: 20181218
  Transmission Date: 20190204
  Serious: Yes (Hospitalization, Other)
  Sender: FDA-Public Use
  Company Number: US-OTSUKA-2018_025693

PATIENT
  Sex: Male

DRUGS (13)
  1. ABILIFY [Suspect]
     Active Substance: ARIPIPRAZOLE
     Indication: SOCIAL ANXIETY DISORDER
  2. ABILIFY [Suspect]
     Active Substance: ARIPIPRAZOLE
     Indication: MAJOR DEPRESSION
     Dosage: 5-10 MG
     Route: 065
     Dates: start: 20110101, end: 2016
  3. ABILIFY [Suspect]
     Active Substance: ARIPIPRAZOLE
     Indication: IRRITABILITY
  4. ABILIFY [Suspect]
     Active Substance: ARIPIPRAZOLE
     Indication: PERSONALITY DISORDER
  5. ARIPIPRAZOLE. [Concomitant]
     Active Substance: ARIPIPRAZOLE
     Indication: PRODUCT USED FOR UNKNOWN INDICATION
     Dosage: UNK
     Route: 065
  6. ABILIFY [Suspect]
     Active Substance: ARIPIPRAZOLE
     Indication: POST-TRAUMATIC STRESS DISORDER
  7. ABILIFY [Suspect]
     Active Substance: ARIPIPRAZOLE
     Indication: OBSESSIVE-COMPULSIVE DISORDER
  8. ALPRAZOLAM. [Concomitant]
     Active Substance: ALPRAZOLAM
     Indication: PRODUCT USED FOR UNKNOWN INDICATION
     Dosage: 0.25 MG, BID
     Route: 065
  9. ABILIFY [Suspect]
     Active Substance: ARIPIPRAZOLE
     Indication: ATTENTION DEFICIT/HYPERACTIVITY DISORDER
  10. ABILIFY [Suspect]
     Active Substance: ARIPIPRAZOLE
     Indication: ANXIETY
  11. COMBIVENT [Concomitant]
     Active Substance: ALBUTEROL SULFATE\IPRATROPIUM BROMIDE
     Indication: PRODUCT USED FOR UNKNOWN INDICATION
     Dosage: 1 DF, BID
     Route: 065
  12. ABILIFY [Suspect]
     Active Substance: ARIPIPRAZOLE
     Indication: AGITATION
  13. BUPROPION HCL [Concomitant]
     Active Substance: BUPROPION HYDROCHLORIDE
     Indication: PRODUCT USED FOR UNKNOWN INDICATION
     Dosage: 75 MG, BID
     Route: 065

REACTIONS (18)
  - Mental disorder [Unknown]
  - Glycosylated haemoglobin increased [Unknown]
  - Sexual dysfunction [Not Recovered/Not Resolved]
  - Gastrointestinal surgery [Unknown]
  - Obsessive-compulsive disorder [Not Recovered/Not Resolved]
  - Condition aggravated [Recovered/Resolved]
  - Loss of employment [Unknown]
  - Blood glucose increased [Unknown]
  - Gambling disorder [Recovered/Resolved]
  - Insomnia [Unknown]
  - Product use in unapproved indication [Unknown]
  - Compulsive shopping [Not Recovered/Not Resolved]
  - Compulsive sexual behaviour [Not Recovered/Not Resolved]
  - Neck pain [Unknown]
  - Dyspnoea [Unknown]
  - Back pain [Unknown]
  - Economic problem [Unknown]
  - Fatigue [Unknown]

NARRATIVE: CASE EVENT DATE: 2011
